FAERS Safety Report 16263613 (Version 1)
Quarter: 2019Q2

REPORT INFORMATION
  Report Type: Spontaneous
  Country: NL (occurrence: NL)
  Receive Date: 20190502
  Receipt Date: 20190502
  Transmission Date: 20190711
  Serious: Yes (Hospitalization)
  Sender: FDA-Public Use
  Company Number: NL-TEVA-2019-NL-1043607

PATIENT
  Age: 26 Year
  Sex: Female

DRUGS (7)
  1. DEXAMETHASONE. [Suspect]
     Active Substance: DEXAMETHASONE
     Indication: ANGIOEDEMA
     Dosage: DURING TWO SUCCESSIVE ACUTE ATTACKS OF ANGIOEDEMA
     Route: 065
  2. EPINEPHRINE. [Suspect]
     Active Substance: EPINEPHRINE
     Indication: ANGIOEDEMA
     Route: 065
  3. TRANEXAMIC ACID. [Concomitant]
     Active Substance: TRANEXAMIC ACID
     Indication: ANGIOEDEMA
     Dosage: THRICE DAILY
     Route: 065
  4. DANAZOL. [Suspect]
     Active Substance: DANAZOL
     Indication: ANGIOEDEMA
     Dosage: 200 MILLIGRAM DAILY;
     Route: 065
  5. CETIRIZINE [Suspect]
     Active Substance: CETIRIZINE HYDROCHLORIDE
     Indication: ANGIOEDEMA
     Dosage: 40 MILLIGRAM DAILY;
     Route: 065
  6. RANITIDINE. [Suspect]
     Active Substance: RANITIDINE
     Indication: ANGIOEDEMA
     Dosage: 600 MILLIGRAM DAILY;
     Route: 065
  7. CLEMASTINE [Suspect]
     Active Substance: CLEMASTINE
     Indication: ANGIOEDEMA
     Route: 042

REACTIONS (2)
  - Myopathy [Recovered/Resolved]
  - Drug ineffective [Unknown]
